FAERS Safety Report 7592048-3 (Version None)
Quarter: 2011Q2

REPORT INFORMATION
  Report Type: 
  Country: None (occurrence: None)
  Receive Date: 20110628
  Receipt Date: 20110622
  Transmission Date: 20111010
  Serious: Yes (Other)
  Sender: FDA-Public Use
  Company Number: 2011SP021503

PATIENT
  Age: 47 Year
  Sex: Female
  Weight: 62 kg

DRUGS (4)
  1. CERAZETTE (DESOGESTREL /00754001/) [Suspect]
     Indication: CONTRACEPTION
     Dates: start: 20101201, end: 20110405
  2. SURFORTAN [Concomitant]
  3. SPASMAG [Concomitant]
  4. PASSIFLORA [Concomitant]

REACTIONS (3)
  - HYPERTENSION [None]
  - OVERWORK [None]
  - ASTHENIA [None]
